FAERS Safety Report 7199915-3 (Version None)
Quarter: 2010Q4

REPORT INFORMATION
  Report Type: 
  Country: None (occurrence: None)
  Receive Date: 20101228
  Receipt Date: 20101220
  Transmission Date: 20110411
  Serious: Yes (Other)
  Sender: FDA-Public Use
  Company Number: US-PFIZER INC-2010176491

PATIENT
  Sex: Female

DRUGS (2)
  1. PREMARIN [Suspect]
     Indication: HORMONE REPLACEMENT THERAPY
     Dosage: YELLOW TABLET, UNK
     Dates: start: 19750101, end: 20050101
  2. PREMARIN [Suspect]
     Dosage: BLUE TABLET, UNK
     Dates: start: 20060101, end: 20070101

REACTIONS (1)
  - BREAST CANCER FEMALE [None]
